FAERS Safety Report 24568242 (Version 3)
Quarter: 2025Q2

REPORT INFORMATION
  Report Type: Report from Study
  Country: CA (occurrence: CA)
  Receive Date: 20241031
  Receipt Date: 20250513
  Transmission Date: 20250717
  Serious: Yes (Other)
  Sender: CSL BEHRING
  Company Number: CA-BEH-2024182702

PATIENT
  Age: 11 Year
  Sex: Male
  Weight: 79 kg

DRUGS (11)
  1. HAEMATE P [Suspect]
     Active Substance: ANTIHEMOPHILIC FACTOR HUMAN
     Indication: Von Willebrand^s disease
     Dosage: 2000 IU, OD
     Route: 042
  2. HAEMATE P [Suspect]
     Active Substance: ANTIHEMOPHILIC FACTOR HUMAN
     Route: 042
     Dates: start: 20241018
  3. HAEMATE P [Suspect]
     Active Substance: ANTIHEMOPHILIC FACTOR HUMAN
     Route: 042
     Dates: start: 20241019
  4. HAEMATE P [Suspect]
     Active Substance: ANTIHEMOPHILIC FACTOR HUMAN
     Route: 042
     Dates: start: 20241020
  5. HAEMATE P [Suspect]
     Active Substance: ANTIHEMOPHILIC FACTOR HUMAN
     Route: 042
     Dates: start: 20241021
  6. HAEMATE P [Suspect]
     Active Substance: ANTIHEMOPHILIC FACTOR HUMAN
     Route: 042
     Dates: start: 20241022
  7. HAEMATE P [Suspect]
     Active Substance: ANTIHEMOPHILIC FACTOR HUMAN
     Dosage: 2000 IU, QD
     Route: 042
  8. HAEMATE P [Suspect]
     Active Substance: ANTIHEMOPHILIC FACTOR HUMAN
     Dosage: 2000 IU, OD
     Route: 042
  9. HAEMATE P [Suspect]
     Active Substance: ANTIHEMOPHILIC FACTOR HUMAN
     Route: 065
     Dates: start: 202505
  10. MELATONIN [Concomitant]
     Active Substance: MELATONIN
  11. CHLORHEXIDINE GLUCONATE [Concomitant]
     Active Substance: CHLORHEXIDINE GLUCONATE
     Route: 042

REACTIONS (11)
  - Surgery [Unknown]
  - Autism spectrum disorder [Unknown]
  - Infection [Unknown]
  - Therapy interrupted [Unknown]
  - Musculoskeletal stiffness [Unknown]
  - Catheter site pain [Unknown]
  - Catheter site pain [Unknown]
  - Catheter site discharge [Unknown]
  - Paronychia [Unknown]
  - Infusion site extravasation [Unknown]
  - Product dose omission issue [Unknown]

NARRATIVE: CASE EVENT DATE: 20241001
